FAERS Safety Report 23947865 (Version 1)
Quarter: 2024Q2

REPORT INFORMATION
  Report Type: Spontaneous
  Country: TN (occurrence: None)
  Receive Date: 20240606
  Receipt Date: 20240606
  Transmission Date: 20240715
  Serious: Yes (Hospitalization, Other)
  Sender: FDA-Public Use
  Company Number: TN-Unichem Pharmaceuticals (USA) Inc-UCM202405-000670

PATIENT
  Age: 23 Year
  Sex: Female

DRUGS (2)
  1. AMLODIPINE [Suspect]
     Active Substance: AMLODIPINE BESYLATE
     Indication: Product used for unknown indication
  2. PERINDOPRIL ARGININE [Suspect]
     Active Substance: PERINDOPRIL ARGININE
     Indication: Product used for unknown indication

REACTIONS (12)
  - Distributive shock [Recovered/Resolved]
  - Electrocardiogram ST segment depression [Recovered/Resolved]
  - Multiple organ dysfunction syndrome [Recovered/Resolved]
  - Acute kidney injury [Recovered/Resolved]
  - Hepatic function abnormal [Recovered/Resolved]
  - Pulmonary oedema [Recovered/Resolved]
  - Metabolic acidosis [Recovered/Resolved]
  - Lung infiltration [Recovered/Resolved]
  - Hyperglycaemia [Recovered/Resolved]
  - Atrial tachycardia [Recovered/Resolved]
  - Toxicity to various agents [Unknown]
  - Overdose [Unknown]
